FAERS Safety Report 16413412 (Version 1)
Quarter: 2019Q2

REPORT INFORMATION
  Report Type: Spontaneous
  Country: PT (occurrence: PT)
  Receive Date: 20190611
  Receipt Date: 20190611
  Transmission Date: 20190711
  Serious: Yes (Death)
  Sender: FDA-Public Use
  Company Number: PT-CELLTRION INC.-2019PT021873

PATIENT

DRUGS (5)
  1. HUMAN IMMUNOGLOBULIN [Suspect]
     Active Substance: HUMAN IMMUNOGLOBULIN G
     Indication: CENTRAL NERVOUS SYSTEM VASCULITIS
     Route: 042
  2. METHOTREXATE. [Suspect]
     Active Substance: METHOTREXATE
     Indication: CENTRAL NERVOUS SYSTEM VASCULITIS
     Route: 037
  3. DEXAMETHASONE. [Suspect]
     Active Substance: DEXAMETHASONE
     Indication: CENTRAL NERVOUS SYSTEM VASCULITIS
     Route: 065
  4. ACYCLOVIR [ACICLOVIR] [Suspect]
     Active Substance: ACYCLOVIR
     Indication: CENTRAL NERVOUS SYSTEM VASCULITIS
     Route: 065
  5. RITUXIMAB (UNKNOWN) [Suspect]
     Active Substance: RITUXIMAB
     Indication: CENTRAL NERVOUS SYSTEM VASCULITIS
     Route: 065

REACTIONS (3)
  - Central nervous system vasculitis [Fatal]
  - Drug ineffective for unapproved indication [Fatal]
  - Product use in unapproved indication [Unknown]
